FAERS Safety Report 7241796-3 (Version None)
Quarter: 2011Q1

REPORT INFORMATION
  Report Type: 
  Country: None (occurrence: None)
  Receive Date: 20110124
  Receipt Date: 20110117
  Transmission Date: 20110831
  Serious: No
  Sender: FDA-Public Use
  Company Number: US-BAYER-2011-005995

PATIENT
  Sex: Female

DRUGS (1)
  1. MIRENA [Suspect]
     Indication: CONTRACEPTION
     Dosage: 20 A?G/D, CONT
     Route: 015
     Dates: start: 20070901

REACTIONS (7)
  - ANGER [None]
  - LIBIDO DECREASED [None]
  - ACNE [None]
  - MOOD SWINGS [None]
  - HEADACHE [None]
  - BACK PAIN [None]
  - MUSCULOSKELETAL STIFFNESS [None]
